FAERS Safety Report 5736849-2 (Version None)
Quarter: 2008Q2

REPORT INFORMATION
  Report Type: 
  Country: None (occurrence: None)
  Receive Date: 20080508
  Receipt Date: 20080430
  Transmission Date: 20081010
  Serious: Yes (Other)
  Sender: FDA-Public Use
  Company Number: 2008011607

PATIENT
  Sex: Male

DRUGS (1)
  1. CETIRIZINE HCL [Suspect]
     Dosage: ORAL
     Route: 048
     Dates: start: 20080430, end: 20080430

REACTIONS (6)
  - ASTHENOPIA [None]
  - BALANCE DISORDER [None]
  - EUPHORIC MOOD [None]
  - MOBILITY DECREASED [None]
  - SOMNOLENCE [None]
  - SPEECH DISORDER [None]
